FAERS Safety Report 24814336 (Version 1)
Quarter: 2025Q1

REPORT INFORMATION
  Report Type: Spontaneous
  Country: FR (occurrence: FR)
  Receive Date: 20250107
  Receipt Date: 20250107
  Transmission Date: 20250408
  Serious: Yes (Death)
  Sender: AUROBINDO
  Company Number: FR-AFSSAPS-PA2024001935

PATIENT

DRUGS (6)
  1. NIFEDIPINE [Suspect]
     Active Substance: NIFEDIPINE
     Indication: Raynaud^s phenomenon
     Dosage: 30 MILLIGRAM, ONCE A DAY
     Route: 064
     Dates: start: 20211006, end: 202205
  2. NIFEDIPINE [Suspect]
     Active Substance: NIFEDIPINE
     Dosage: 30 MILLIGRAM, ONCE A DAY
     Route: 064
     Dates: start: 20221115, end: 20230105
  3. NIFEDIPINE [Suspect]
     Active Substance: NIFEDIPINE
     Dosage: 60 MILLIGRAM, ONCE A DAY
     Route: 064
     Dates: start: 20230106
  4. CLAIRYG [Suspect]
     Active Substance: HUMAN IMMUNOGLOBULIN G
     Indication: Scleroderma overlap syndrome
     Route: 064
     Dates: start: 20221102
  5. PLAQUENIL [Suspect]
     Active Substance: HYDROXYCHLOROQUINE SULFATE
     Indication: Scleroderma overlap syndrome
     Dosage: 400 MILLIGRAM, ONCE A DAY
     Route: 064
     Dates: start: 20210630
  6. PREDNISONE [Suspect]
     Active Substance: PREDNISONE
     Indication: Scleroderma overlap syndrome
     Dosage: 7 MILLIGRAM, ONCE A DAY
     Route: 064
     Dates: start: 20211124

REACTIONS (1)
  - Trisomy 13 [Fatal]

NARRATIVE: CASE EVENT DATE: 20230421
